FAERS Safety Report 14825758 (Version 1)
Quarter: 2018Q2

REPORT INFORMATION
  Report Type: Spontaneous
  Country: SE (occurrence: SE)
  Receive Date: 20180430
  Receipt Date: 20180430
  Transmission Date: 20180711
  Serious: Yes (Other)
  Sender: FDA-Public Use
  Company Number: SE-ORION CORPORATION ORION PHARMA-18_00003490

PATIENT
  Age: 45 Year
  Sex: Female

DRUGS (5)
  1. BUFOMIX EASYHALER [Concomitant]
     Route: 055
  2. METHOTREXATE (TRADE NAME UNKNOWN) [Suspect]
     Active Substance: METHOTREXATE
     Indication: PULMONARY SARCOIDOSIS
     Route: 048
     Dates: start: 20180316, end: 20180316
  3. FOLACIN [Concomitant]
     Active Substance: FOLIC ACID
     Route: 065
  4. OXIS TURBOHALER [Concomitant]
     Route: 065
  5. LITHIUM CARBONATE. [Concomitant]
     Active Substance: LITHIUM CARBONATE

REACTIONS (3)
  - Product use in unapproved indication [Unknown]
  - Rash [Recovered/Resolved]
  - Peripheral swelling [Recovered/Resolved]

NARRATIVE: CASE EVENT DATE: 20180322
